FAERS Safety Report 21468781 (Version 1)
Quarter: 2022Q4

REPORT INFORMATION
  Report Type: Spontaneous
  Country: CN (occurrence: CN)
  Receive Date: 20221018
  Receipt Date: 20221018
  Transmission Date: 20230113
  Serious: Yes (Other)
  Sender: FDA-Public Use
  Company Number: CN-SUN PHARMACEUTICAL INDUSTRIES LTD-2022R1-359260

PATIENT
  Age: 50 Year
  Sex: Male

DRUGS (2)
  1. GEMCITABINE [Suspect]
     Active Substance: GEMCITABINE
     Indication: Cholangiocarcinoma
     Dosage: 1000 MILLIGRAM/SQ. METER ON DAY 1 IN 3-WEEKLY CYCLES FOR SIX CYCLES
     Route: 065
     Dates: start: 201709
  2. PACLITAXEL [Suspect]
     Active Substance: PACLITAXEL
     Indication: Cholangiocarcinoma
     Dosage: 125 MILLIGRAM/SQ. METER ON DAY 1 AND DAY 8 FOR SIX CYCLES
     Route: 065
     Dates: start: 201709

REACTIONS (1)
  - Disease progression [Unknown]

NARRATIVE: CASE EVENT DATE: 20180302
